FAERS Safety Report 25114170 (Version 4)
Quarter: 2025Q4

REPORT INFORMATION
  Report Type: Spontaneous
  Country: EU (occurrence: EU)
  Receive Date: 20250324
  Receipt Date: 20251226
  Transmission Date: 20260118
  Serious: Yes (Life-Threatening, Hospitalization, Disabling, Other)
  Sender: TAKEDA
  Company Number: EU-TAKEDA-2021TEU010102

PATIENT
  Age: 83 Year
  Sex: Female
  Weight: 91 kg

DRUGS (126)
  1. CANDESARTAN [Suspect]
     Active Substance: CANDESARTAN
     Indication: Atrial fibrillation
     Dosage: 2 MILLIGRAM, QD
  2. LANSOPRAZOLE [Suspect]
     Active Substance: LANSOPRAZOLE
     Indication: Product used for unknown indication
     Dosage: 10 MILLIGRAM, QD
     Dates: start: 20180207
  3. LANSOPRAZOLE [Suspect]
     Active Substance: LANSOPRAZOLE
     Dosage: 5 MILLIGRAM, QD
     Dates: start: 20180207
  4. LANSOPRAZOLE [Suspect]
     Active Substance: LANSOPRAZOLE
     Dosage: 5 MILLIGRAM, QD
     Dates: start: 20240218
  5. LANSOPRAZOLE [Suspect]
     Active Substance: LANSOPRAZOLE
     Dosage: 10 MILLIGRAM, QD
     Dates: start: 20240218
  6. LANSOPRAZOLE [Suspect]
     Active Substance: LANSOPRAZOLE
     Dosage: 5 MILLIGRAM, QD
     Dates: start: 20220207
  7. LANSOPRAZOLE [Suspect]
     Active Substance: LANSOPRAZOLE
     Dosage: 30 MILLIGRAM, QD
     Dates: start: 20220207
  8. ACETAMINOPHEN [Interacting]
     Active Substance: ACETAMINOPHEN
     Indication: Product used for unknown indication
     Dosage: 500 MILLIGRAM, QD
  9. ACETAMINOPHEN [Interacting]
     Active Substance: ACETAMINOPHEN
     Dosage: UNK UNK, BID
  10. ACETAMINOPHEN [Interacting]
     Active Substance: ACETAMINOPHEN
     Dosage: 500 MILLIGRAM, BID
  11. ACETAMINOPHEN [Interacting]
     Active Substance: ACETAMINOPHEN
     Dosage: 500 MILLIGRAM, QD
  12. LEVOTHYROXINE [Interacting]
     Active Substance: LEVOTHYROXINE
     Indication: Product used for unknown indication
     Dosage: 100 PICOGRAM, QD
  13. LEVOTHYROXINE [Interacting]
     Active Substance: LEVOTHYROXINE
     Dosage: 100 MICROGRAM, QD
  14. LEVOTHYROXINE [Interacting]
     Active Substance: LEVOTHYROXINE
     Dosage: 100 MICROGRAM, QD
  15. ATORVASTATIN [Interacting]
     Active Substance: ATORVASTATIN
     Indication: Product used for unknown indication
     Dosage: 20 MILLIGRAM, QD
  16. ATORVASTATIN [Interacting]
     Active Substance: ATORVASTATIN
     Dosage: 20 MILLIGRAM, QD
  17. RAMIPRIL [Interacting]
     Active Substance: RAMIPRIL
     Indication: Cardiac failure
     Dosage: 5 MILLIGRAM, QD
  18. RAMIPRIL [Interacting]
     Active Substance: RAMIPRIL
     Dosage: 5 MILLIGRAM, QD
  19. METFORMIN [Suspect]
     Active Substance: METFORMIN HYDROCHLORIDE
     Indication: Type 2 diabetes mellitus
     Dosage: UNK
  20. TRAMADOL [Interacting]
     Active Substance: TRAMADOL
     Indication: Product used for unknown indication
     Dosage: UNK
  21. TRAMADOL [Interacting]
     Active Substance: TRAMADOL
     Dosage: 100 MILLIGRAM
  22. TRAMADOL [Interacting]
     Active Substance: TRAMADOL
     Dosage: 50 MILLIGRAM
  23. TRAMADOL [Interacting]
     Active Substance: TRAMADOL
     Dosage: UNK
  24. TRAMADOL [Interacting]
     Active Substance: TRAMADOL
     Dosage: UNK
  25. ISOSORBIDE MONONITRATE [Interacting]
     Active Substance: ISOSORBIDE MONONITRATE
     Indication: Product used for unknown indication
     Dosage: 50 MILLIGRAM, QD
  26. ISOSORBIDE MONONITRATE [Interacting]
     Active Substance: ISOSORBIDE MONONITRATE
     Dosage: 50 MILLIGRAM, QD
  27. FUROSEMIDE [Interacting]
     Active Substance: FUROSEMIDE
     Indication: Product used for unknown indication
     Dosage: 40 MILLIGRAM
  28. FUROSEMIDE [Interacting]
     Active Substance: FUROSEMIDE
     Dosage: 120 MILLIGRAM, QOD
  29. FUROSEMIDE [Interacting]
     Active Substance: FUROSEMIDE
     Dosage: 3 DOSAGE FORM IN 2 DAY
  30. HYDROXYZINE [Interacting]
     Active Substance: HYDROXYZINE HYDROCHLORIDE
     Indication: Product used for unknown indication
     Dosage: 25 MILLIGRAM
  31. HYDROXYZINE [Interacting]
     Active Substance: HYDROXYZINE HYDROCHLORIDE
     Dosage: 25 MILLIGRAM, QD
  32. HYDROXYZINE [Interacting]
     Active Substance: HYDROXYZINE HYDROCHLORIDE
     Dosage: 25 MILLIGRAM, BID
  33. ZOLPIDEM [Interacting]
     Active Substance: ZOLPIDEM TARTRATE
     Indication: Depression
     Dosage: 0-0-1
  34. ZOLPIDEM [Interacting]
     Active Substance: ZOLPIDEM TARTRATE
     Dosage: 100 MILLIGRAM, QD
  35. ZOLPIDEM [Interacting]
     Active Substance: ZOLPIDEM TARTRATE
     Dosage: 10 MILLIGRAM, QD
  36. CITALOPRAM [Interacting]
     Active Substance: CITALOPRAM
     Indication: Depression
     Dosage: UNK UNK, QD
  37. CITALOPRAM [Interacting]
     Active Substance: CITALOPRAM
     Dosage: 40 MILLIGRAM
  38. CITALOPRAM [Interacting]
     Active Substance: CITALOPRAM
     Dosage: UNK, QD
  39. OMEPRAZOLE [Interacting]
     Active Substance: OMEPRAZOLE
     Indication: Product used for unknown indication
     Dosage: 20 MILLIGRAM, BID
  40. OMEPRAZOLE [Interacting]
     Active Substance: OMEPRAZOLE
     Dosage: 20 MILLIGRAM, BID
  41. OMEPRAZOLE [Interacting]
     Active Substance: OMEPRAZOLE
     Dosage: 100 MILLIGRAM, BID
  42. ALBUTEROL [Interacting]
     Active Substance: ALBUTEROL
     Indication: Product used for unknown indication
     Dosage: UNK
  43. ALBUTEROL [Interacting]
     Active Substance: ALBUTEROL
     Dosage: 100 PICOGRAM
  44. ALPRAZOLAM [Interacting]
     Active Substance: ALPRAZOLAM
     Indication: Depression
     Dosage: 0.5 MILLIGRAM
  45. ALPRAZOLAM [Interacting]
     Active Substance: ALPRAZOLAM
     Indication: Constipation
     Dosage: 0.5 MILLIGRAM, QD
  46. ALPRAZOLAM [Interacting]
     Active Substance: ALPRAZOLAM
     Dosage: UNK
  47. DEXTROSE\NIKETHAMIDE [Interacting]
     Active Substance: DEXTROSE\NIKETHAMIDE
     Indication: Product used for unknown indication
     Dosage: UNK
  48. DEXTROSE\NIKETHAMIDE [Interacting]
     Active Substance: DEXTROSE\NIKETHAMIDE
     Dosage: UNK
  49. ALLOPURINOL [Interacting]
     Active Substance: ALLOPURINOL
     Indication: Product used for unknown indication
     Dosage: 100 MILLIGRAM, QD
  50. ALLOPURINOL [Interacting]
     Active Substance: ALLOPURINOL
     Dosage: 100 MILLIGRAM, QD
  51. ALLOPURINOL [Interacting]
     Active Substance: ALLOPURINOL
     Dosage: 100 MILLIGRAM, QD
  52. ALLOPURINOL [Interacting]
     Active Substance: ALLOPURINOL
     Dosage: 100 MILLIGRAM, QD
  53. POTASSIUM CHLORIDE [Interacting]
     Active Substance: POTASSIUM CHLORIDE
     Indication: Product used for unknown indication
     Dosage: 391 MILLIGRAM
  54. POTASSIUM CHLORIDE [Interacting]
     Active Substance: POTASSIUM CHLORIDE
     Dosage: 391 MILLIGRAM, QOD
  55. DABIGATRAN [Interacting]
     Active Substance: DABIGATRAN
     Indication: Product used for unknown indication
     Dosage: 110 MILLIGRAM, BID
  56. DABIGATRAN [Interacting]
     Active Substance: DABIGATRAN
     Dosage: 110 MILLIGRAM, BID
  57. DABIGATRAN [Interacting]
     Active Substance: DABIGATRAN
     Dosage: 110 MILLIGRAM, BID
  58. HYDROCHLOROTHIAZIDE [Interacting]
     Active Substance: HYDROCHLOROTHIAZIDE
     Indication: Product used for unknown indication
     Dosage: 25 MILLIGRAM, QD
  59. HYDROCHLOROTHIAZIDE [Interacting]
     Active Substance: HYDROCHLOROTHIAZIDE
     Dosage: 25 MILLIGRAM, QD
  60. GLICLAZIDE [Interacting]
     Active Substance: GLICLAZIDE
     Indication: Product used for unknown indication
     Dosage: 60 MILLIGRAM, TID
  61. GLICLAZIDE [Interacting]
     Active Substance: GLICLAZIDE
     Dosage: 60 MILLIGRAM, TID
  62. METOPROLOL [Interacting]
     Active Substance: METOPROLOL
     Indication: Hypertension
     Dosage: UNK UNK, BID
  63. METOPROLOL [Interacting]
     Active Substance: METOPROLOL
     Dosage: 50 MILLIGRAM, BID
  64. METOPROLOL [Interacting]
     Active Substance: METOPROLOL
     Dosage: 50 MILLIGRAM, BID
  65. METOPROLOL [Interacting]
     Active Substance: METOPROLOL
     Dosage: 50 MILLIGRAM
  66. METOPROLOL [Interacting]
     Active Substance: METOPROLOL
     Dosage: 50 MILLIGRAM, BID
  67. SPIRONOLACTONE [Interacting]
     Active Substance: SPIRONOLACTONE
     Indication: Product used for unknown indication
     Dosage: 100 MILLIGRAM, QD
  68. SPIRONOLACTONE [Interacting]
     Active Substance: SPIRONOLACTONE
     Dosage: 100 MILLIGRAM, QD
  69. BETAHISTINE [Interacting]
     Active Substance: BETAHISTINE
     Indication: Product used for unknown indication
     Dosage: UNK UNK, QD
  70. BETAHISTINE [Interacting]
     Active Substance: BETAHISTINE
     Dosage: 24 MILLIGRAM, QD
  71. BETAHISTINE [Interacting]
     Active Substance: BETAHISTINE
     Dosage: 1 DOSAGE FORM, QD
  72. POTASSIUM CHLORIDE [Interacting]
     Active Substance: POTASSIUM CHLORIDE
     Indication: Product used for unknown indication
     Dosage: UNK
  73. DEXTROSE\NIKETHAMIDE [Interacting]
     Active Substance: DEXTROSE\NIKETHAMIDE
     Indication: Product used for unknown indication
     Dosage: 1.5/125 MILLIGRAM
  74. DEXTROSE [Suspect]
     Active Substance: DEXTROSE MONOHYDRATE
     Indication: Product used for unknown indication
     Dosage: 1.5 MILLIGRAM
  75. NIKETHAMIDE [Suspect]
     Active Substance: NIKETHAMIDE
     Indication: Product used for unknown indication
     Dosage: 125 MILLIGRAM
  76. FELODIPINE [Suspect]
     Active Substance: FELODIPINE
     Indication: Hypertension
     Dosage: UNK
  77. ZOCOR [Suspect]
     Active Substance: SIMVASTATIN
     Indication: Product used for unknown indication
     Dosage: 40 MILLIGRAM, QD
  78. DAPAGLIFLOZIN [Suspect]
     Active Substance: DAPAGLIFLOZIN
     Indication: Ill-defined disorder
     Dosage: 10 MILLIGRAM, QD
  79. ESOMEPRAZOLE [Suspect]
     Active Substance: ESOMEPRAZOLE
     Indication: Reflux laryngitis
     Dosage: 40 MILLIGRAM, QD
  80. ASTRAZENECA COVID-19 VACCINE [Suspect]
     Active Substance: AZD-1222
     Indication: COVID-19 immunisation
     Dosage: UNK
  81. ASTRAZENECA COVID-19 VACCINE [Suspect]
     Active Substance: AZD-1222
     Dosage: UNK
  82. ASTRAZENECA COVID-19 VACCINE [Suspect]
     Active Substance: AZD-1222
     Dosage: UNK
  83. ASTRAZENECA COVID-19 VACCINE [Suspect]
     Active Substance: AZD-1222
     Dosage: UNK
  84. ASTRAZENECA COVID-19 VACCINE [Suspect]
     Active Substance: AZD-1222
     Dosage: UNK
  85. ASTRAZENECA COVID-19 VACCINE [Suspect]
     Active Substance: AZD-1222
     Dosage: UNK
  86. ASTRAZENECA COVID-19 VACCINE [Suspect]
     Active Substance: AZD-1222
     Dosage: UNK
  87. ASTRAZENECA COVID-19 VACCINE [Suspect]
     Active Substance: AZD-1222
     Dosage: UNK
  88. ASTRAZENECA COVID-19 VACCINE [Suspect]
     Active Substance: AZD-1222
     Dosage: UNK
  89. ASTRAZENECA COVID-19 VACCINE [Suspect]
     Active Substance: AZD-1222
     Dosage: UNK
  90. ASTRAZENECA COVID-19 VACCINE [Suspect]
     Active Substance: AZD-1222
     Dosage: UNK
  91. BISOPROLOL [Suspect]
     Active Substance: BISOPROLOL
     Indication: Cerebrovascular accident prophylaxis
     Dosage: 5 MILLIGRAM, QD
     Dates: start: 20180207
  92. BISOPROLOL [Suspect]
     Active Substance: BISOPROLOL
     Dosage: 10 MILLIGRAM, QD
  93. BISOPROLOL [Suspect]
     Active Substance: BISOPROLOL
     Dosage: 10 MILLIGRAM, QD
  94. CETIRIZINE [Suspect]
     Active Substance: CETIRIZINE HYDROCHLORIDE
     Indication: Product used for unknown indication
     Dosage: 10 MILLIGRAM, QD
  95. CETIRIZINE [Suspect]
     Active Substance: CETIRIZINE HYDROCHLORIDE
     Dosage: 1 DOSAGE FORM, QD
  96. CETIRIZINE [Suspect]
     Active Substance: CETIRIZINE HYDROCHLORIDE
     Dosage: 62.5 MILLIGRAM, QD
  97. CETIRIZINE [Suspect]
     Active Substance: CETIRIZINE HYDROCHLORIDE
     Dosage: 10 MILLIGRAM, QD
  98. LINAGLIPTIN [Suspect]
     Active Substance: LINAGLIPTIN
     Indication: Product used for unknown indication
     Dosage: 5 MILLIGRAM, QD
  99. ELIQUIS [Suspect]
     Active Substance: APIXABAN
     Indication: Cerebrovascular accident prophylaxis
     Dosage: 10 MILLIGRAM, QD
     Dates: start: 20180207
  100. ELIQUIS [Suspect]
     Active Substance: APIXABAN
     Indication: Atrial fibrillation
     Dosage: 5 MILLIGRAM, QD
  101. ELIQUIS [Suspect]
     Active Substance: APIXABAN
     Dosage: 5 MILLIGRAM, QD
  102. ELIQUIS [Suspect]
     Active Substance: APIXABAN
     Dosage: 10 MILLIGRAM, QD
  103. ELIQUIS [Suspect]
     Active Substance: APIXABAN
     Dosage: 5 MILLIGRAM, QD
  104. ELIQUIS [Suspect]
     Active Substance: APIXABAN
     Dosage: 5 MILLIGRAM, QD
  105. ISOSORBIDE DINITRATE [Suspect]
     Active Substance: ISOSORBIDE DINITRATE
     Indication: Product used for unknown indication
     Dosage: 50 MILLIGRAM, QD
  106. ISOSORBIDE DINITRATE [Suspect]
     Active Substance: ISOSORBIDE DINITRATE
     Dosage: 50 MILLIGRAM, QD
  107. ISOSORBIDE DINITRATE [Suspect]
     Active Substance: ISOSORBIDE DINITRATE
     Dosage: 2 DOSAGE FORM
  108. ISOSORBIDE DINITRATE [Suspect]
     Active Substance: ISOSORBIDE DINITRATE
     Dosage: 50 MILLIGRAM
  109. ISOSORBIDE DINITRATE [Suspect]
     Active Substance: ISOSORBIDE DINITRATE
     Dosage: 50 MILLIGRAM, QD
  110. ISOSORBIDE DINITRATE [Suspect]
     Active Substance: ISOSORBIDE DINITRATE
     Dosage: UNK, QD
  111. DIGOXIN [Suspect]
     Active Substance: DIGOXIN
     Indication: Cerebrovascular accident prophylaxis
     Dosage: 62.5 MILLIGRAM, QD
  112. DIGOXIN [Suspect]
     Active Substance: DIGOXIN
     Dosage: 63 DOSAGE FORM, QD
  113. DIGOXIN [Suspect]
     Active Substance: DIGOXIN
     Dosage: 1 MILLIGRAM, QD
  114. DIGOXIN [Suspect]
     Active Substance: DIGOXIN
     Dosage: 4 MILLIGRAM, QD
  115. DIGOXIN [Suspect]
     Active Substance: DIGOXIN
     Dosage: 62.5 GRAM, QD
  116. BENSERAZIDE\LEVODOPA [Suspect]
     Active Substance: BENSERAZIDE\LEVODOPA
     Indication: Product used for unknown indication
     Dosage: 62.5 MILLIGRAM, TID
  117. DONEPEZIL [Suspect]
     Active Substance: DONEPEZIL
     Indication: Product used for unknown indication
     Dosage: 5 MILLIGRAM
  118. NAPROXEN [Suspect]
     Active Substance: NAPROXEN
     Indication: Product used for unknown indication
     Dosage: UNK
  119. TORSEMIDE [Concomitant]
     Active Substance: TORSEMIDE
     Dosage: UNK
  120. VORTIOXETINE [Concomitant]
     Active Substance: VORTIOXETINE
     Dosage: UNK
  121. QUETIAPINE [Concomitant]
     Active Substance: QUETIAPINE
     Dosage: UNK
  122. AMLODIPINE BESYLATE [Concomitant]
     Active Substance: AMLODIPINE BESYLATE
  123. METOCLOPRAMIDE [Concomitant]
     Active Substance: METOCLOPRAMIDE
     Indication: Constipation
     Dosage: 10 MILLIGRAM
  124. METOCLOPRAMIDE [Concomitant]
     Active Substance: METOCLOPRAMIDE
     Dosage: 10 MILLIGRAM
  125. METOCLOPRAMIDE [Concomitant]
     Active Substance: METOCLOPRAMIDE
     Dosage: AS NECESSARY 2 TABLETS IN CASE OF CONSTIPATION FOR MENY MONTHS
  126. METOCLOPRAMIDE [Concomitant]
     Active Substance: METOCLOPRAMIDE
     Dosage: 20 MILLIGRAM

REACTIONS (113)
  - Eye pruritus [Unknown]
  - Dizziness [Unknown]
  - Hyponatraemia [Unknown]
  - Hallucination [Unknown]
  - Cognitive disorder [Unknown]
  - Multiple drug therapy [Unknown]
  - Vertigo [Unknown]
  - Pruritus [Unknown]
  - Dementia [Unknown]
  - Hypoglycaemia [Unknown]
  - Urinary retention [Unknown]
  - Fall [Unknown]
  - Osteoporosis [Unknown]
  - Parkinsonism [Unknown]
  - Hiatus hernia [Unknown]
  - Drug dependence [Unknown]
  - Hyperkalaemia [Unknown]
  - Gastric polyps [Unknown]
  - Constipation [Unknown]
  - Dysuria [Unknown]
  - Atrioventricular block first degree [Unknown]
  - Blood pressure decreased [Unknown]
  - Mobility decreased [Unknown]
  - Depression [Unknown]
  - Arthralgia [Unknown]
  - Initial insomnia [Unknown]
  - Melaena [Unknown]
  - Blood urea increased [Unknown]
  - Labelled drug-drug interaction issue [Unknown]
  - Blood cholesterol decreased [Unknown]
  - Insomnia [Unknown]
  - Blood creatine increased [Unknown]
  - Abdominal pain upper [Unknown]
  - Hypotension [Unknown]
  - Syncope [Recovering/Resolving]
  - Peripheral circulatory failure [Unknown]
  - Drug interaction [Recovered/Resolved]
  - Drug ineffective [Unknown]
  - Malaise [Unknown]
  - Pericarditis [Not Recovered/Not Resolved]
  - Cardiospasm [Not Recovered/Not Resolved]
  - Atrial tachycardia [Unknown]
  - Muscular weakness [Unknown]
  - Anosmia [Recovering/Resolving]
  - Lip swelling [Not Recovered/Not Resolved]
  - Feeling abnormal [Unknown]
  - Dry skin [Not Recovered/Not Resolved]
  - Amnesia [Recovering/Resolving]
  - Pain [Unknown]
  - Diarrhoea [Unknown]
  - Facial pain [Unknown]
  - Dyspnoea [Unknown]
  - Palpitations [Unknown]
  - Chest pain [Unknown]
  - Tachycardia [Unknown]
  - Abdominal discomfort [Unknown]
  - Pyrexia [Unknown]
  - Angioedema [Unknown]
  - Ventricular tachycardia [Not Recovered/Not Resolved]
  - Subarachnoid haemorrhage [Recovered/Resolved]
  - Headache [Not Recovered/Not Resolved]
  - Vomiting [Recovered/Resolved]
  - Disturbance in attention [Recovered/Resolved]
  - Palmoplantar keratoderma [Not Recovered/Not Resolved]
  - Migraine [Not Recovered/Not Resolved]
  - Tinnitus [Not Recovered/Not Resolved]
  - Peripheral swelling [Unknown]
  - Pain of skin [Unknown]
  - Tension headache [Not Recovered/Not Resolved]
  - Alopecia [Recovered/Resolved with Sequelae]
  - Memory impairment [Recovering/Resolving]
  - Sleep terror [Unknown]
  - Pruritus genital [Unknown]
  - Visual impairment [Not Recovered/Not Resolved]
  - Diplopia [Not Recovered/Not Resolved]
  - Blindness [Not Recovered/Not Resolved]
  - Vasculitis [Not Recovered/Not Resolved]
  - Transient ischaemic attack [Recovered/Resolved]
  - COVID-19 [Unknown]
  - Heart rate increased [Unknown]
  - Back pain [Unknown]
  - Muscle twitching [Unknown]
  - Hyperhidrosis [Unknown]
  - Rash papular [Unknown]
  - Dehydration [Unknown]
  - Anxiety [Unknown]
  - Carotid artery occlusion [Recovered/Resolved]
  - Nausea [Unknown]
  - Myocardial infarction [Recovered/Resolved]
  - Diabetes mellitus inadequate control [Unknown]
  - Product administration error [Unknown]
  - Incorrect product administration duration [Unknown]
  - Product use in unapproved indication [Unknown]
  - Off label use [Unknown]
  - Medication error [Recovered/Resolved]
  - Hyperglycaemia [Unknown]
  - Hypertension [Unknown]
  - Hypotonia [Recovering/Resolving]
  - Sedation [Recovering/Resolving]
  - Orthostatic hypotension [Unknown]
  - Bradykinesia [Unknown]
  - Neuroglycopenia [Unknown]
  - Motor dysfunction [Recovering/Resolving]
  - Blood potassium increased [Unknown]
  - Muscle rigidity [Unknown]
  - Gastrointestinal disorder [Unknown]
  - Stupor [Unknown]
  - Atrial fibrillation [Unknown]
  - General physical health deterioration [Unknown]
  - Product use issue [Recovered/Resolved]
  - Drug dependence [Recovered/Resolved]
  - Ataxia [Unknown]
  - Sedation complication [Unknown]

NARRATIVE: CASE EVENT DATE: 20210101
